FAERS Safety Report 8233385-9 (Version None)
Quarter: 2012Q1

REPORT INFORMATION
  Report Type: 
  Country: None (occurrence: None)
  Receive Date: 20120323
  Receipt Date: 20120323
  Transmission Date: 20120608
  Serious: No
  Sender: FDA-Public Use
  Company Number: None

PATIENT

DRUGS (5)
  1. ENALAPRIL MALEATE [Suspect]
     Dosage: ORAL
     Route: 048
  2. ACETAMINOPHEN [Suspect]
     Dosage: ORAL
     Route: 048
  3. ZOLPIDEM [Suspect]
     Dosage: ORAL
     Route: 048
  4. OMEPRAZOLE [Suspect]
     Dosage: ORAL
     Route: 048
  5. HYDROCHLOROTHIAZIDE [Suspect]
     Dosage: ORAL
     Route: 048

REACTIONS (3)
  - DRUG DISPENSING ERROR [None]
  - PRODUCT COMMINGLING [None]
  - MEDICATION ERROR [None]
